FAERS Safety Report 24605024 (Version 1)
Quarter: 2024Q4

REPORT INFORMATION
  Report Type: Report from Study
  Country: CA (occurrence: CA)
  Receive Date: 20241111
  Receipt Date: 20241111
  Transmission Date: 20250115
  Serious: Yes (Other)
  Sender: SANDOZ
  Company Number: CA-SANDOZ-SDZ2024CA093886

PATIENT
  Sex: Female

DRUGS (1)
  1. HYRIMOZ [Suspect]
     Active Substance: ADALIMUMAB-ADAZ
     Indication: Crohn^s disease
     Dosage: UNK, WEEK 0=160 MG, WEEK 2=80 MG, THEN 40 MG EVERY OTHER WEEK, BEGINNING AT WEEK 4;EVERY TWO WEEKS,
     Route: 058
     Dates: start: 20240527

REACTIONS (1)
  - Musculoskeletal discomfort [Unknown]
